FAERS Safety Report 7529036-9 (Version None)
Quarter: 2011Q2

REPORT INFORMATION
  Report Type: 
  Country: None (occurrence: None)
  Receive Date: 20110520
  Receipt Date: 20110413
  Transmission Date: 20111010
  Serious: No
  Sender: FDA-Public Use
  Company Number: 031194

PATIENT
  Age: 20 Year

DRUGS (3)
  1. LACOSAMIDE [Suspect]
     Dosage: (50 MG BID)
  2. KEPPRA [Concomitant]
  3. TOPAMAX [Concomitant]

REACTIONS (2)
  - AGITATION [None]
  - MOOD SWINGS [None]
